FAERS Safety Report 8489321-3 (Version None)
Quarter: 2012Q2

REPORT INFORMATION
  Report Type: 
  Country: None (occurrence: None)
  Receive Date: 20120628
  Receipt Date: 20120628
  Transmission Date: 20120825
  Serious: Yes (Hospitalization)
  Sender: FDA-Public Use
  Company Number: None

PATIENT
  Age: 62 Year
  Sex: Male
  Weight: 80 kg

DRUGS (1)
  1. OLANZAPINE [Suspect]
     Indication: BIPOLAR I DISORDER
     Dosage: 15 MG EVERY DAY PO
     Route: 048
     Dates: start: 20100813

REACTIONS (4)
  - MYALGIA [None]
  - CONVULSION [None]
  - URINARY RETENTION [None]
  - MENTAL STATUS CHANGES [None]
